FAERS Safety Report 5118530-6 (Version None)
Quarter: 2006Q4

REPORT INFORMATION
  Report Type: 
  Country: None (occurrence: None)
  Receive Date: 20061002
  Receipt Date: 20051012
  Transmission Date: 20070319
  Serious: Yes (Hospitalization)
  Sender: FDA-Public Use
  Company Number: PHBS2005NL15146

PATIENT
  Age: 73 Year
  Sex: Female

DRUGS (9)
  1. GLEEVEC [Suspect]
     Indication: GASTROINTESTINAL STROMAL TUMOUR
     Dosage: 600 MG/DAY
     Route: 048
  2. GLEEVEC [Suspect]
     Dosage: 400 MG/DAY
     Route: 048
  3. GLEEVEC [Suspect]
     Dosage: 400 MG/D
     Route: 048
  4. LEVOTHYROXINE SODIUM [Suspect]
     Dosage: 175 UG/DAY
     Route: 048
  5. LEVOTHYROXINE SODIUM [Suspect]
     Dosage: 200 UG/DAY
     Route: 048
  6. LEVOTHYROXINE SODIUM [Suspect]
     Dosage: 250 UG/DAY
     Route: 048
  7. ALENDRONIC ACID [Concomitant]
  8. HYDROCHLOROTHIAZDE TAB [Concomitant]
  9. QUINAPRIL [Concomitant]

REACTIONS (11)
  - ALOPECIA [None]
  - ASTHENIA [None]
  - BLOOD THYROID STIMULATING HORMONE INCREASED [None]
  - DRUG INTERACTION [None]
  - FACE OEDEMA [None]
  - FATIGUE [None]
  - HYPOTHYROIDISM [None]
  - NAUSEA [None]
  - ONYCHOCLASIS [None]
  - PERIORBITAL OEDEMA [None]
  - TEMPERATURE INTOLERANCE [None]
